FAERS Safety Report 18024523 (Version 1)
Quarter: 2020Q3

REPORT INFORMATION
  Report Type: Spontaneous
  Country: US (occurrence: US)
  Receive Date: 20200714
  Receipt Date: 20200714
  Transmission Date: 20201103
  Serious: Yes (Hospitalization)
  Sender: FDA-Public Use
  Company Number: None

PATIENT
  Age: 40 Year
  Sex: Male
  Weight: 69.75 kg

DRUGS (6)
  1. CITALAPRAM [Concomitant]
  2. MARIJUANA [Concomitant]
     Active Substance: CANNABIS SATIVA SUBSP. INDICA TOP
  3. MELATONIN [Concomitant]
     Active Substance: MELATONIN
  4. CBD [Concomitant]
     Active Substance: CANNABIDIOL
  5. FINASTERIDE. [Concomitant]
     Active Substance: FINASTERIDE
  6. SILDENAFIL. [Suspect]
     Active Substance: SILDENAFIL
     Dates: start: 20200628, end: 20200629

REACTIONS (1)
  - Dysuria [None]

NARRATIVE: CASE EVENT DATE: 20200630
